FAERS Safety Report 4912829-1 (Version None)
Quarter: 2006Q1

REPORT INFORMATION
  Report Type: 
  Country: None (occurrence: None)
  Receive Date: 20060113
  Receipt Date: 20041214
  Transmission Date: 20060701
  Serious: Yes (Other)
  Sender: FDA-Public Use
  Company Number: HQWYE983215DEC04

PATIENT
  Age: 52 Year
  Sex: Female
  Weight: 64.47 kg

DRUGS (9)
  1. PREMPRO [Suspect]
     Indication: HOT FLUSH
  2. PREMPRO [Suspect]
     Indication: NIGHT SWEATS
  3. CENESTIN [Suspect]
     Indication: HEADACHE
  4. CENESTIN [Suspect]
     Indication: HOT FLUSH
  5. CENESTIN [Suspect]
     Indication: HYPERHIDROSIS
  6. PROMETRIUM [Suspect]
     Indication: HEADACHE
  7. PROMETRIUM [Suspect]
     Indication: HOT FLUSH
  8. PROMETRIUM [Suspect]
     Indication: NIGHT SWEATS
  9. PROVERA [Suspect]
     Indication: MENSTRUATION IRREGULAR

REACTIONS (1)
  - BREAST CANCER [None]
